FAERS Safety Report 7201983-7 (Version None)
Quarter: 2010Q4

REPORT INFORMATION
  Report Type: 
  Country: None (occurrence: None)
  Receive Date: 20101215
  Receipt Date: 20101209
  Transmission Date: 20110411
  Serious: Yes (Life-Threatening, Other)
  Sender: FDA-Public Use
  Company Number: 2010US004476

PATIENT

DRUGS (8)
  1. VIBATIV [Suspect]
     Indication: ENDOCARDITIS STAPHYLOCOCCAL
     Dosage: 10 MG/KG, UID/QD, IV NOS
     Route: 042
     Dates: start: 20101011, end: 20101015
  2. VIBATIV [Suspect]
     Indication: MULTIPLE-DRUG RESISTANCE
     Dosage: 10 MG/KG, UID/QD, IV NOS
     Route: 042
     Dates: start: 20101011, end: 20101015
  3. VIBATIV [Suspect]
     Indication: STAPHYLOCOCCAL BACTERAEMIA
     Dosage: 10 MG/KG, UID/QD, IV NOS
     Route: 042
     Dates: start: 20101011, end: 20101015
  4. VIBATIV [Suspect]
     Indication: STAPHYLOCOCCAL INFECTION
     Dosage: 10 MG/KG, UID/QD, IV NOS
     Route: 042
     Dates: start: 20101011, end: 20101015
  5. VIBATIV [Suspect]
     Indication: ENDOCARDITIS STAPHYLOCOCCAL
     Dosage: 10 MG/KG, UID/QD, IV NOS
     Route: 042
     Dates: start: 20101022, end: 20101025
  6. VIBATIV [Suspect]
     Indication: MULTIPLE-DRUG RESISTANCE
     Dosage: 10 MG/KG, UID/QD, IV NOS
     Route: 042
     Dates: start: 20101022, end: 20101025
  7. VIBATIV [Suspect]
     Indication: STAPHYLOCOCCAL BACTERAEMIA
     Dosage: 10 MG/KG, UID/QD, IV NOS
     Route: 042
     Dates: start: 20101022, end: 20101025
  8. VIBATIV [Suspect]
     Indication: STAPHYLOCOCCAL INFECTION
     Dosage: 10 MG/KG, UID/QD, IV NOS
     Route: 042
     Dates: start: 20101022, end: 20101025

REACTIONS (6)
  - ARRHYTHMIA [None]
  - CARDIAC ARREST [None]
  - HAEMODIALYSIS [None]
  - RENAL FAILURE [None]
  - RENAL ISCHAEMIA [None]
  - RENAL TUBULAR NECROSIS [None]
